FAERS Safety Report 16942728 (Version 1)
Quarter: 2019Q4

REPORT INFORMATION
  Report Type: Spontaneous
  Country: US (occurrence: US)
  Receive Date: 20191021
  Receipt Date: 20191021
  Transmission Date: 20200122
  Serious: No
  Sender: FDA-Public Use
  Company Number: US-IBSA PHARMA-TIR-2019-0444

PATIENT
  Age: 44 Year
  Sex: Female
  Weight: 63.56 kg

DRUGS (2)
  1. TIROSINT [Suspect]
     Active Substance: LEVOTHYROXINE SODIUM
     Indication: THYROIDECTOMY
     Dosage: 100MCG DAILY
     Route: 048
     Dates: start: 2018, end: 201904
  2. TIROSINT [Suspect]
     Active Substance: LEVOTHYROXINE SODIUM
     Dosage: 100MCG DAILY
     Route: 048
     Dates: start: 201904

REACTIONS (4)
  - Hypothyroidism [Unknown]
  - Feeling jittery [Unknown]
  - Feeling cold [Unknown]
  - Asthenia [Unknown]

NARRATIVE: CASE EVENT DATE: 201904
